FAERS Safety Report 21961815 (Version 1)
Quarter: 2023Q1

REPORT INFORMATION
  Report Type: Spontaneous
  Country: US (occurrence: None)
  Receive Date: 20230207
  Receipt Date: 20230207
  Transmission Date: 20230418
  Serious: Yes (Hospitalization)
  Sender: FDA-Public Use
  Company Number: 2023A026651

PATIENT
  Age: 25728 Day
  Sex: Female
  Weight: 99.8 kg

DRUGS (2)
  1. BRILINTA [Suspect]
     Active Substance: TICAGRELOR
     Indication: Myocardial infarction
     Route: 048
     Dates: start: 20220908, end: 20221230
  2. ASPIRIN [Suspect]
     Active Substance: ASPIRIN

REACTIONS (3)
  - Haemorrhage [Unknown]
  - Palpitations [Unknown]
  - Therapeutic product effect decreased [Unknown]

NARRATIVE: CASE EVENT DATE: 20221230
